FAERS Safety Report 5013708-4 (Version None)
Quarter: 2006Q2

REPORT INFORMATION
  Report Type: 
  Country: None (occurrence: None)
  Receive Date: 20060525
  Receipt Date: 20060412
  Transmission Date: 20061013
  Serious: Yes (Other)
  Sender: FDA-Public Use
  Company Number: CIO05020255

PATIENT
  Age: 17 Year
  Sex: Female
  Weight: 54.4 kg

DRUGS (4)
  1. DAYQUIL COLD + FLU RELIEF (DEXTROMETHORPHAN HYDROBROMIDE 20 OR 30 MG, [Suspect]
     Indication: NASOPHARYNGITIS
     Dosage: 2 LIQCAP, 1 ONLY FOR 1 DAY, ORAL
     Route: 048
     Dates: start: 20051215, end: 20051215
  2. ALLEGRA [Concomitant]
  3. MOTRIN [Concomitant]
  4. ORAL CONTRACEPTIVE NOS (ORAL CONTRACEPTIVE NOS) [Concomitant]

REACTIONS (16)
  - ADVERSE DRUG REACTION [None]
  - BLOOD CREATININE DECREASED [None]
  - CONFUSIONAL STATE [None]
  - DEPRESSED LEVEL OF CONSCIOUSNESS [None]
  - DIFFICULTY IN WALKING [None]
  - DIZZINESS [None]
  - DYSSTASIA [None]
  - HEART RATE INCREASED [None]
  - HYPERSENSITIVITY [None]
  - HYPOVENTILATION [None]
  - LOSS OF CONSCIOUSNESS [None]
  - MALAISE [None]
  - MENTAL STATUS CHANGES [None]
  - SOMNOLENCE [None]
  - UNRESPONSIVE TO VERBAL STIMULI [None]
  - WHITE BLOOD CELL COUNT INCREASED [None]
